FAERS Safety Report 23992930 (Version 1)
Quarter: 2024Q2

REPORT INFORMATION
  Report Type: Spontaneous
  Country: DE (occurrence: DE)
  Receive Date: 20240620
  Receipt Date: 20240620
  Transmission Date: 20240716
  Serious: Yes (Death, Hospitalization, Other)
  Sender: FDA-Public Use
  Company Number: DE-PBT-009433

PATIENT
  Age: 5 Month
  Sex: Male

DRUGS (4)
  1. TACROLIMUS [Suspect]
     Active Substance: TACROLIMUS
     Indication: Prophylaxis against transplant rejection
     Route: 065
  2. PREDNISOLONE [Suspect]
     Active Substance: PREDNISOLONE
     Indication: Prophylaxis against transplant rejection
     Route: 065
  3. BASILIXIMAB [Suspect]
     Active Substance: BASILIXIMAB
     Indication: Prophylaxis against transplant rejection
     Dosage: 2 DOSE
     Route: 065
  4. HYDROCORTISONE [Suspect]
     Active Substance: HYDROCORTISONE\HYDROCORTISONE ACETATE
     Indication: Prophylaxis against transplant rejection
     Route: 065

REACTIONS (9)
  - Sepsis [Unknown]
  - Abdominal infection [Unknown]
  - Aspergillus infection [Unknown]
  - Small intestinal perforation [Unknown]
  - Multiple organ dysfunction syndrome [Unknown]
  - Bronchopulmonary aspergillosis [Unknown]
  - Renal failure [Fatal]
  - Hepatic failure [Fatal]
  - Haemothorax [Fatal]
